FAERS Safety Report 15102512 (Version 3)
Quarter: 2023Q4

REPORT INFORMATION
  Report Type: Spontaneous
  Country: US (occurrence: US)
  Receive Date: 20180703
  Receipt Date: 20231116
  Transmission Date: 20240109
  Serious: Yes (Other)
  Sender: FDA-Public Use
  Company Number: US-SA-2018SA017049

PATIENT
  Age: 34 Year
  Sex: Female
  Weight: 89.8 kg

DRUGS (4)
  1. DOCETAXEL [Suspect]
     Active Substance: DOCETAXEL\DOCETAXEL ANHYDROUS
     Indication: Breast cancer female
     Dosage: UNK UNK, Q3W
     Route: 042
     Dates: start: 20160818, end: 20160818
  2. DOCETAXEL [Suspect]
     Active Substance: DOCETAXEL\DOCETAXEL ANHYDROUS
     Dosage: UNK UNK, Q3W
     Route: 042
     Dates: start: 20170221, end: 20170221
  3. HERCEPTIN [Concomitant]
     Active Substance: TRASTUZUMAB
  4. PERJETA [Concomitant]
     Active Substance: PERTUZUMAB
     Route: 065

REACTIONS (1)
  - Alopecia [Recovering/Resolving]

NARRATIVE: CASE EVENT DATE: 20170801
